FAERS Safety Report 20045459 (Version 1)
Quarter: 2021Q4

REPORT INFORMATION
  Report Type: Spontaneous
  Country: CA (occurrence: CA)
  Receive Date: 20211108
  Receipt Date: 20211108
  Transmission Date: 20220303
  Serious: Yes (Other)
  Sender: FDA-Public Use
  Company Number: CA-TEVA-2021-CA-1973698

PATIENT
  Age: 59 Year
  Sex: Female

DRUGS (4)
  1. CIPROFLOXACIN [Interacting]
     Active Substance: CIPROFLOXACIN
     Indication: Product used for unknown indication
     Dosage: 1000 MILLIGRAM DAILY;
     Route: 065
  2. LEVOFLOXACIN [Interacting]
     Active Substance: LEVOFLOXACIN
     Indication: Product used for unknown indication
     Dosage: 750 MILLIGRAM DAILY;
     Route: 065
  3. RIFAMPIN [Interacting]
     Active Substance: RIFAMPIN
     Indication: Infection
     Dosage: 600 MILLIGRAM DAILY;
     Route: 065
  4. WARFARIN [Interacting]
     Active Substance: WARFARIN
     Indication: Atrial fibrillation
     Route: 065

REACTIONS (2)
  - Drug interaction [Unknown]
  - International normalised ratio abnormal [Unknown]
